FAERS Safety Report 10542323 (Version 1)
Quarter: 2014Q4

REPORT INFORMATION
  Report Type: Spontaneous
  Country: US (occurrence: None)
  Receive Date: 20141010
  Receipt Date: 20141010
  Transmission Date: 20150529
  Serious: Yes (Other)
  Sender: FDA-Public Use
  Company Number: 163-POMAL-14055762

PATIENT
  Age: 60 Year
  Sex: Female
  Weight: 63.5 kg

DRUGS (25)
  1. DIAZEPAM (DIAZEPAM) [Concomitant]
     Active Substance: DIAZEPAM
  2. METANX (METANX) [Concomitant]
  3. DEXAMETHASONE (DEXAMETHASONE) [Concomitant]
     Active Substance: DEXAMETHASONE
  4. VITAMIN D2 (ERGOCALCIFEROL) [Concomitant]
  5. HYDROCHLOROTHIAZIDE (HYDROCHLOROTHIAZIDE) [Concomitant]
     Active Substance: HYDROCHLOROTHIAZIDE
  6. TOPROL XL (METOPROLOL SUCCINATE) [Concomitant]
  7. AREDS 2 (OTHER THERAPEUTIC PRODUCTS) [Concomitant]
  8. L-TYROCINE (OTHER THERAPEUTIC PRODUCTS) [Concomitant]
  9. TURMERIC (TURMERIC) [Concomitant]
  10. OXYCODONE HCL (OXYCODONE HYDROCHLORIDE) [Concomitant]
  11. ALPHA LIPOIC ACID (THIOCTIC ACID) [Concomitant]
  12. OMEPRAZOLE (OMEPRAZOLE) [Concomitant]
     Active Substance: OMEPRAZOLE
  13. POMALYST [Suspect]
     Active Substance: POMALIDOMIDE
     Indication: PLASMA CELL MYELOMA
     Dosage: 21 IN 28 D
     Route: 048
     Dates: start: 20140529
  14. MEKINIST (TRAMETINIB) [Concomitant]
  15. REVLIMID [Suspect]
     Active Substance: LENALIDOMIDE
     Indication: PLASMA CELL MYELOMA
     Dosage: 1 IN 1 D
     Route: 048
     Dates: start: 200909
  16. CALCIUM WITH VITAMIN D (CALCIUM WITH VITAMIN D) [Concomitant]
  17. ONE-A-DAY MULTIVITAMIN (MULTIVITAMINS) [Concomitant]
  18. METOPROLOL (METOPROLOL) [Concomitant]
     Active Substance: METOPROLOL
  19. ACYCLOVIR (ACYCLOVIR) [Concomitant]
     Active Substance: ACYCLOVIR
  20. WARFARIN (WARFARIN) [Concomitant]
     Active Substance: WARFARIN
  21. SELENIUM (SELENIUM) [Concomitant]
  22. BENADRYL (CLONALIN) [Concomitant]
  23. ACIDOPHILLIS (LACTOBACILLUS ACIDOPHILUS) [Concomitant]
  24. C0Q10 (UBIDECARENONE) [Concomitant]
  25. ENOXAPARIN SODIUM (HEPARIN-FRACTION, SODIUM SALT) [Concomitant]

REACTIONS (3)
  - Venous thrombosis [None]
  - Jugular vein thrombosis [None]
  - Infection [None]

NARRATIVE: CASE EVENT DATE: 201405
